FAERS Safety Report 18948588 (Version 1)
Quarter: 2021Q1

REPORT INFORMATION
  Report Type: Other
  Country: GB (occurrence: GB)
  Receive Date: 20210226
  Receipt Date: 20210226
  Transmission Date: 20210420
  Serious: Yes (Other)
  Sender: FDA-Public Use
  Company Number: GB-CELLTRION INC.-2021GB002334

PATIENT

DRUGS (29)
  1. TRASTUZUMAB (UNKNOWN) [Suspect]
     Active Substance: TRASTUZUMAB
     Dosage: 400 MG, EVERY 3 WEEKS
     Route: 041
     Dates: start: 20170614, end: 20180425
  2. TRASTUZUMAB EMTANSINE [Suspect]
     Active Substance: ADO-TRASTUZUMAB EMTANSINE
     Indication: BREAST CANCER
     Dosage: 240 MG, EVERY 3 WEEKS
     Route: 042
     Dates: start: 20190427, end: 20190606
  3. CALCICHEW D3 FORTE [Concomitant]
     Active Substance: CALCIUM\CHOLECALCIFEROL
     Dosage: 1 DF, EVERY 0.33 DAY
     Route: 048
     Dates: start: 20170525
  4. TINZAPARIN [Concomitant]
     Active Substance: TINZAPARIN
     Dosage: 12000 IU, QD
     Route: 058
     Dates: start: 20170713, end: 20190723
  5. TRASTUZUMAB (UNKNOWN) [Suspect]
     Active Substance: TRASTUZUMAB
     Indication: BREAST CANCER
     Dosage: 525 MG, EVERY 3 WEEKS
     Route: 041
     Dates: start: 20170524, end: 20170524
  6. TRASTUZUMAB (UNKNOWN) [Suspect]
     Active Substance: TRASTUZUMAB
     Dosage: 378 MG, EVERY 3 WEEKS
     Route: 041
     Dates: start: 20180516, end: 20190327
  7. PERTUZUMAB. [Suspect]
     Active Substance: PERTUZUMAB
     Dosage: 420 MG, EVERY 3 WEEKS
     Route: 042
     Dates: start: 20170614, end: 20190327
  8. DOMPERIDONE [Concomitant]
     Active Substance: DOMPERIDONE
     Dosage: 10 MG, EVERY 0.33 DAY
     Route: 048
     Dates: start: 20170523
  9. LANSOPRAZOLE. [Concomitant]
     Active Substance: LANSOPRAZOLE
     Dosage: 30 MG, QD
     Route: 048
     Dates: start: 20190730
  10. AMITRIPTYLINE HYDROCHLORIDE. [Concomitant]
     Active Substance: AMITRIPTYLINE HYDROCHLORIDE
     Dosage: 5 MG, QD
     Route: 048
     Dates: start: 20190827
  11. FUSIDIC ACID [Concomitant]
     Active Substance: FUSIDIC ACID
     Dosage: UNK
     Dates: start: 201905
  12. IKERVIS [Concomitant]
     Active Substance: CYCLOSPORINE
     Dosage: UNK
     Route: 047
     Dates: start: 201708
  13. SANDO K [POTASSIUM BICARBONATE;POTASSIUM CHLORIDE] [Concomitant]
     Active Substance: POTASSIUM BICARBONATE\POTASSIUM CHLORIDE
     Dosage: 1 DF, EVERY 0.5 DAY, EFFERVESCENT
     Route: 048
     Dates: start: 20170525
  14. CETIRIZINE [Concomitant]
     Active Substance: CETIRIZINE HYDROCHLORIDE
     Dosage: 10 MG, QD
     Route: 048
     Dates: start: 20190313
  15. CHLORHEXIDINE GLUCONATE. [Concomitant]
     Active Substance: CHLORHEXIDINE GLUCONATE
     Dosage: 10 ML, EVERY 0.25 DAY
     Route: 061
     Dates: start: 20170525
  16. CLOBETASOL PROPIONATE. [Concomitant]
     Active Substance: CLOBETASOL PROPIONATE
     Dosage: 0.05 %, EVERY 0.5 DAY
     Route: 061
     Dates: start: 20170210
  17. TINZAPARIN [Concomitant]
     Active Substance: TINZAPARIN
     Dosage: 4500 IU, QD
     Route: 058
     Dates: start: 20190916
  18. CHLORPHENAMINE [Concomitant]
     Active Substance: CHLORPHENIRAMINE MALEATE
     Dosage: 4 MG, EVERY 0.25 DAY
     Route: 048
     Dates: start: 20170526
  19. TRASTUZUMAB EMTANSINE [Suspect]
     Active Substance: ADO-TRASTUZUMAB EMTANSINE
     Dosage: 160 MG, EVERY 3 WEEKS
     Route: 042
     Dates: start: 20190829
  20. PACLITAXEL. [Suspect]
     Active Substance: PACLITAXEL
     Indication: BREAST CANCER
     Dosage: 375 MG, EVERY 3 WEEKS
     Route: 042
     Dates: start: 20170705, end: 20170726
  21. ZOLEDRONIC ACID [Concomitant]
     Active Substance: ZOLEDRONIC ACID
     Dosage: 4 MG
     Route: 042
     Dates: start: 20170525
  22. TRASTUZUMAB EMTANSINE [Suspect]
     Active Substance: ADO-TRASTUZUMAB EMTANSINE
     Dosage: 200 MG, EVERY 3 WEEKS
     Route: 042
     Dates: start: 20190627, end: 20190718
  23. PACLITAXEL. [Suspect]
     Active Substance: PACLITAXEL
     Dosage: 300 MG, EVERY 3 WEEKS
     Route: 042
     Dates: start: 20170816, end: 20170906
  24. TRANEXAMIC ACID. [Concomitant]
     Active Substance: TRANEXAMIC ACID
     Dosage: UNK
     Dates: start: 20190722
  25. PARACETAMOL [Concomitant]
     Active Substance: ACETAMINOPHEN
     Dosage: 1 IU
     Route: 048
     Dates: start: 20170525
  26. PERTUZUMAB. [Suspect]
     Active Substance: PERTUZUMAB
     Indication: BREAST CANCER
     Dosage: 840 MG, EVERY 3 WEEKS
     Route: 042
     Dates: start: 20170524, end: 20170524
  27. DOCETAXEL. [Suspect]
     Active Substance: DOCETAXEL
     Indication: BREAST CANCER
     Dosage: 130 MG, EVERY 3 WEEKS
     Route: 042
     Dates: start: 20170525, end: 20170525
  28. PACLITAXEL. [Suspect]
     Active Substance: PACLITAXEL
     Dosage: 450 MG, EVERY 3 WEEKS
     Route: 042
     Dates: start: 20170614, end: 20170614
  29. LOPERAMIDE [Concomitant]
     Active Substance: LOPERAMIDE
     Dosage: 2 MG
     Route: 048
     Dates: start: 20170613

REACTIONS (1)
  - Melaena [Recovered/Resolved]

NARRATIVE: CASE EVENT DATE: 20200626
